FAERS Safety Report 16551203 (Version 1)
Quarter: 2019Q3

REPORT INFORMATION
  Report Type: Spontaneous
  Country: US (occurrence: US)
  Receive Date: 20190709
  Receipt Date: 20190709
  Transmission Date: 20191004
  Serious: No
  Sender: FDA-Public Use
  Company Number: None

PATIENT
  Sex: Male
  Weight: 59 kg

DRUGS (2)
  1. RITUXAN [Suspect]
     Active Substance: RITUXIMAB
     Indication: NON-HODGKIN^S LYMPHOMA
     Dates: start: 20190613
  2. REVLIMID [Concomitant]
     Active Substance: LENALIDOMIDE

REACTIONS (7)
  - Poikilocytosis [None]
  - Congenital thrombocyte disorder [None]
  - Hypotension [None]
  - Heart rate decreased [None]
  - Neutropenia [None]
  - Lethargy [None]
  - Anisocytosis [None]
